FAERS Safety Report 16044258 (Version 1)
Quarter: 2019Q1

REPORT INFORMATION
  Report Type: Report from Study
  Country: US (occurrence: US)
  Receive Date: 20190306
  Receipt Date: 20190306
  Transmission Date: 20190418
  Serious: Yes (Other)
  Sender: FDA-Public Use
  Company Number: PHEH2019US009855

PATIENT
  Sex: Female

DRUGS (1)
  1. GILENYA [Suspect]
     Active Substance: FINGOLIMOD HYDROCHLORIDE
     Indication: MULTIPLE SCLEROSIS
     Dosage: 0.5 MG, QD
     Route: 048
     Dates: start: 20170705

REACTIONS (5)
  - Feeling abnormal [Recovering/Resolving]
  - Tooth infection [Recovering/Resolving]
  - Autoimmune disorder [Recovering/Resolving]
  - Mitral valve incompetence [Not Recovered/Not Resolved]
  - Malaise [Recovering/Resolving]
